FAERS Safety Report 9270661 (Version 2)
Quarter: 2014Q1

REPORT INFORMATION
  Report Type: Spontaneous
  Country: GB (occurrence: GB)
  Receive Date: 20130505
  Receipt Date: 20140228
  Transmission Date: 20141002
  Serious: Yes (Hospitalization)
  Sender: FDA-Public Use
  Company Number: PHHY2013GB042969

PATIENT
  Age: 49 Year
  Sex: Female

DRUGS (18)
  1. FLUOXETINE [Suspect]
     Dosage: 56 DF, UNK
     Route: 048
     Dates: start: 20130124
  2. FLUOXETINE [Suspect]
     Dates: end: 20140206
  3. FUROSEMIDE [Suspect]
     Dosage: 28 DF, UNK
     Route: 048
  4. BISOPROLOL FUMARATE [Suspect]
     Dosage: 56 DF, UNK
     Route: 048
     Dates: end: 20140206
  5. CLOPIDOGREL [Suspect]
     Dosage: 28 DF, UNK
     Route: 048
  6. CLOPIDOGREL [Suspect]
     Dates: end: 20140206
  7. RAMIPRIL [Suspect]
     Dosage: 56 DF, UNK
     Route: 048
  8. RAMIPRIL [Suspect]
     Dates: end: 20140206
  9. OLANZAPINE [Suspect]
     Dates: end: 20140206
  10. PARACETAMOL [Suspect]
     Dosage: 16 DF, UNK
     Route: 048
  11. IBUPROFEN [Suspect]
     Dosage: 24 DF, UNK
     Route: 048
  12. ACETYLSALICYLIC ACID [Suspect]
     Route: 048
  13. ZAPONEX [Suspect]
     Indication: SCHIZOPHRENIA
     Route: 048
     Dates: start: 20041014, end: 20130129
  14. ZAPONEX [Suspect]
     Route: 048
     Dates: start: 20130304, end: 20140206
  15. LANSOPRAZOLE [Concomitant]
     Indication: DYSPEPSIA
     Dosage: 30 MG, UNK
     Route: 048
  16. LANSOPRAZOLE [Concomitant]
     Indication: GASTRITIS
  17. GAVISCON [Concomitant]
     Indication: DYSPEPSIA
     Dosage: 10 ML, UNK
     Route: 048
  18. GAVISCON [Concomitant]
     Indication: GASTRITIS

REACTIONS (9)
  - Faecal incontinence [Unknown]
  - Hypercholesterolaemia [Not Recovered/Not Resolved]
  - Renal failure acute [Recovered/Resolved]
  - Coma scale abnormal [Unknown]
  - Alanine aminotransferase increased [Recovered/Resolved]
  - Agitation [Unknown]
  - Confusional state [Unknown]
  - Intentional overdose [Recovered/Resolved]
  - Treatment noncompliance [Recovered/Resolved]
